FAERS Safety Report 16168487 (Version 3)
Quarter: 2022Q1

REPORT INFORMATION
  Report Type: Spontaneous
  Country: CA (occurrence: CA)
  Receive Date: 20190408
  Receipt Date: 20220204
  Transmission Date: 20220424
  Serious: Yes (Hospitalization, Other)
  Sender: FDA-Public Use
  Company Number: CA-NAPPMUNDI-CAN-2019-0009889

PATIENT
  Age: 21 Year
  Sex: Female

DRUGS (10)
  1. MORPHINE SULFATE [Suspect]
     Active Substance: MORPHINE SULFATE
     Indication: Product used for unknown indication
     Dosage: UNK
     Route: 065
  2. MORPHINE SULFATE [Suspect]
     Active Substance: MORPHINE SULFATE
     Dosage: UNK
     Route: 065
  3. HYDROMORPHONE HYDROCHLORIDE [Suspect]
     Active Substance: HYDROMORPHONE HYDROCHLORIDE
     Indication: Drug dependence
     Dosage: UNK
     Route: 064
  4. HYDROMORPHONE HYDROCHLORIDE [Suspect]
     Active Substance: HYDROMORPHONE HYDROCHLORIDE
     Indication: Exposure during pregnancy
     Dosage: UNK
     Route: 065
  5. HYDROMORPHONE HYDROCHLORIDE [Suspect]
     Active Substance: HYDROMORPHONE HYDROCHLORIDE
     Dosage: UNK
     Route: 064
  6. FENTANYL CITRATE [Suspect]
     Active Substance: FENTANYL CITRATE
     Indication: Drug dependence
     Dosage: UNK
     Route: 064
  7. FENTANYL CITRATE [Suspect]
     Active Substance: FENTANYL CITRATE
     Indication: Exposure during pregnancy
     Dosage: UNK
     Route: 064
  8. FENTANYL CITRATE [Suspect]
     Active Substance: FENTANYL CITRATE
     Dosage: UNK
     Route: 065
  9. MORPHINE SULFATE [Suspect]
     Active Substance: MORPHINE SULFATE
     Indication: Product used for unknown indication
     Route: 064
  10. HYDROMORPHONE HYDROCHLORIDE [Suspect]
     Active Substance: HYDROMORPHONE HYDROCHLORIDE
     Indication: Drug dependence
     Route: 064

REACTIONS (8)
  - Drug dependence [Unknown]
  - Drug withdrawal syndrome neonatal [Unknown]
  - Off label use [Unknown]
  - Crying [Unknown]
  - Maternal exposure during pregnancy [Unknown]
  - Drug abuse [Unknown]
  - Product use in unapproved indication [Unknown]
  - Foetal exposure during pregnancy [Unknown]
